FAERS Safety Report 5217914-5 (Version None)
Quarter: 2007Q1

REPORT INFORMATION
  Report Type: 
  Country: None (occurrence: None)
  Receive Date: 20061130
  Receipt Date: 20060726
  Transmission Date: 20070707
  Serious: Yes (Other)
  Sender: FDA-Public Use
  Company Number: US200608000915

PATIENT
  Age: 46 Year
  Sex: Female
  Weight: 81.6 kg

DRUGS (2)
  1. OLANZAPINE [Suspect]
     Indication: ANXIETY
     Dosage: 10 MG
     Dates: start: 19990101
  2. GABAPENTIN [Concomitant]

REACTIONS (1)
  - PANCREATITIS [None]
